FAERS Safety Report 5737474-X (Version None)
Quarter: 2008Q2

REPORT INFORMATION
  Report Type: 
  Country: None (occurrence: None)
  Receive Date: 20080514
  Receipt Date: 20080414
  Transmission Date: 20081010
  Serious: No
  Sender: FDA-Public Use
  Company Number: US-BRISTOL-MYERS SQUIBB COMPANY-14151286

PATIENT
  Sex: Female

DRUGS (2)
  1. IXEMPRA KIT [Suspect]
     Dosage: LAST INFUSION GIVEN ON 11-APR-2008
     Dates: end: 20080412
  2. XELODA [Suspect]

REACTIONS (1)
  - PALMAR-PLANTAR ERYTHRODYSAESTHESIA SYNDROME [None]
